FAERS Safety Report 6146775-5 (Version None)
Quarter: 2009Q2

REPORT INFORMATION
  Report Type: 
  Country: None (occurrence: None)
  Receive Date: 20090407
  Receipt Date: 20090327
  Transmission Date: 20091009
  Serious: Yes (Hospitalization, Other)
  Sender: FDA-Public Use
  Company Number: SE-CELGENEUS-150-20484-09021690

PATIENT
  Age: 54 Year
  Sex: Female

DRUGS (1)
  1. INNOHEP [Suspect]
     Indication: PROPHYLAXIS
     Dosage: 3500-4000 U
     Route: 058

REACTIONS (2)
  - DRUG PRESCRIBING ERROR [None]
  - PULMONARY EMBOLISM [None]
